FAERS Safety Report 13336000 (Version 1)
Quarter: 2017Q1

REPORT INFORMATION
  Report Type: Spontaneous
  Country: DK (occurrence: DK)
  Receive Date: 20170315
  Receipt Date: 20170315
  Transmission Date: 20170428
  Serious: Yes (Hospitalization)
  Sender: FDA-Public Use
  Company Number: DK-ORION CORPORATION ORION PHARMA-16_00002091

PATIENT
  Age: 66 Year
  Sex: Male

DRUGS (9)
  1. ALDACTONE [Suspect]
     Active Substance: SPIRONOLACTONE
     Indication: HYPERTENSION
     Route: 048
     Dates: start: 20150123
  2. KALEORID [Suspect]
     Active Substance: POTASSIUM CHLORIDE
     Indication: MINERAL SUPPLEMENTATION
     Dosage: STRENGTH: 750 MG
     Route: 048
     Dates: end: 20160608
  3. ENALAPRIL KRKA [Suspect]
     Active Substance: ENALAPRIL MALEATE
     Indication: HYPERTENSION
     Dosage: STRENGTH: 20 MG
     Route: 048
  4. FURIX [Concomitant]
     Active Substance: FUROSEMIDE
     Route: 048
  5. CARDURAN RETARD [Concomitant]
     Indication: HYPERTENSION
     Route: 048
     Dates: start: 20160518
  6. ENALAPRIL KRKA [Suspect]
     Active Substance: ENALAPRIL MALEATE
     Dosage: 20 MG + 10 MG
     Route: 048
  7. FURIX [Concomitant]
     Active Substance: FUROSEMIDE
     Indication: HYPERTENSION
     Route: 048
  8. ENALAPRIL KRKA [Suspect]
     Active Substance: ENALAPRIL MALEATE
     Route: 048
  9. KALEORID [Suspect]
     Active Substance: POTASSIUM CHLORIDE
     Route: 048

REACTIONS (4)
  - Acute kidney injury [Recovered/Resolved with Sequelae]
  - Nocturia [Not Recovered/Not Resolved]
  - Toxicity to various agents [Recovered/Resolved with Sequelae]
  - Dry skin [Not Recovered/Not Resolved]

NARRATIVE: CASE EVENT DATE: 20160522
